FAERS Safety Report 18031905 (Version 1)
Quarter: 2020Q3

REPORT INFORMATION
  Report Type: Spontaneous
  Country: GB (occurrence: GB)
  Receive Date: 20200716
  Receipt Date: 20200716
  Transmission Date: 20201103
  Serious: Yes (Life-Threatening)
  Sender: FDA-Public Use
  Company Number: GB-TEVA-2020-GB-1800818

PATIENT
  Age: 43 Week
  Sex: Female
  Weight: 58 kg

DRUGS (4)
  1. CYCLIZINE [Concomitant]
     Active Substance: CYCLIZINE
     Dosage: UP TO THREE TIMES A DAY
     Dates: start: 20200608
  2. BUSCOPAN [Concomitant]
     Active Substance: BUTYLSCOPOLAMINE BROMIDE
     Dosage: 10 MG, ONE TO TWO TABLETS TO BE TAKEN AS REQUIRED
     Dates: start: 20200423, end: 20200605
  3. CLARITHROMYCIN. [Suspect]
     Active Substance: CLARITHROMYCIN
     Dosage: 500 MG
     Dates: start: 20200615, end: 20200617
  4. DOCUSATE [Concomitant]
     Active Substance: DOCUSATE
     Dosage: 100 MG, TWO TO FIVE TABLETS DAILY, AS REQUIRED. MAXIMUM DOSE = 5 TABLETS IN 24 HOURS
     Dates: start: 20200423, end: 20200605

REACTIONS (1)
  - Anaphylactic reaction [Recovered/Resolved]

NARRATIVE: CASE EVENT DATE: 20200617
